FAERS Safety Report 15053077 (Version 1)
Quarter: 2018Q2

REPORT INFORMATION
  Report Type: Spontaneous
  Country: FR (occurrence: FR)
  Receive Date: 20180622
  Receipt Date: 20180622
  Transmission Date: 20180711
  Serious: Yes (Death)
  Sender: FDA-Public Use
  Company Number: FR-PFIZER INC-2018252392

PATIENT
  Age: 50 Year
  Sex: Female
  Weight: 80 kg

DRUGS (10)
  1. CERUBIDINE [Suspect]
     Active Substance: DAUNORUBICIN HYDROCHLORIDE
     Indication: ACUTE LEUKAEMIA
     Dosage: 90 MG/M2, CYCLIC (TOTAL DOSE RECEIVED 174 MG/M2)
     Route: 042
     Dates: start: 20180504, end: 20180506
  2. DOLIPRANE [Concomitant]
     Active Substance: ACETAMINOPHEN
     Dosage: 1 G, 3X/DAY AS NEEDED
     Route: 048
     Dates: end: 20180506
  3. NOXAFIL [Suspect]
     Active Substance: POSACONAZOLE
     Indication: ANTIFUNGAL PROPHYLAXIS
     Dosage: 100 MG, 1X/DAY
     Route: 048
     Dates: end: 20180506
  4. PIPERACILLIN AND TAZOBACTAM [Suspect]
     Active Substance: PIPERACILLIN SODIUM\TAZOBACTAM SODIUM
     Indication: FEBRILE BONE MARROW APLASIA
     Dosage: 16 G, 1X/DAY
     Route: 042
     Dates: start: 20180504, end: 20180506
  5. TRIFLUCAN [Suspect]
     Active Substance: FLUCONAZOLE
     Indication: ANTIFUNGAL PROPHYLAXIS
     Dosage: 400 MG, 1X/DAY IN THE MORNING
     Route: 048
     Dates: start: 20180503, end: 20180506
  6. PRIMPERAN [Suspect]
     Active Substance: METOCLOPRAMIDE HYDROCHLORIDE
     Indication: NAUSEA
     Dosage: 10 MG, 1X/DAY
     Route: 048
     Dates: start: 20180505, end: 20180506
  7. CYTARABINE SANDOZ [Suspect]
     Active Substance: CYTARABINE
     Indication: ACUTE LEUKAEMIA
     Dosage: 200 MG/M2, CYCLIC (TOTAL DOSE RECEIVED 385 MG/M2)
     Route: 042
     Dates: start: 20180504, end: 20180506
  8. ZELITREX [Concomitant]
     Active Substance: VALACYCLOVIR HYDROCHLORIDE
     Indication: ANTIVIRAL PROPHYLAXIS
     Dosage: 1000 MG, 1X/DAY
     Route: 048
     Dates: end: 20180506
  9. TAVANIC [Suspect]
     Active Substance: LEVOFLOXACIN
     Indication: ANTIBIOTIC PROPHYLAXIS
     Dosage: 1000 MG (500 MG X 2), 1X/DAY
     Route: 048
     Dates: end: 20180506
  10. FUROSEMIDE ARROW [Suspect]
     Active Substance: FUROSEMIDE
     Indication: URINE OUTPUT DECREASED
     Dosage: 20 MG, SINGLE
     Route: 042
     Dates: start: 20180506, end: 20180506

REACTIONS (1)
  - Cardio-respiratory arrest [Fatal]

NARRATIVE: CASE EVENT DATE: 20180506
